FAERS Safety Report 22157744 (Version 1)
Quarter: 2023Q1

REPORT INFORMATION
  Report Type: Spontaneous
  Country: US (occurrence: US)
  Receive Date: 20230330
  Receipt Date: 20230330
  Transmission Date: 20230418
  Serious: No
  Sender: FDA-Public Use
  Company Number: US-JNJFOC-20230362021

PATIENT
  Age: 4 Decade
  Sex: Female

DRUGS (1)
  1. RISPERDAL [Suspect]
     Active Substance: RISPERIDONE
     Indication: Product used for unknown indication
     Dosage: PATIENT WAS ON RISPERDAL IN APR/MAY2021
     Route: 065
     Dates: start: 2021

REACTIONS (3)
  - Joint stiffness [Unknown]
  - Motor dysfunction [Unknown]
  - Musculoskeletal stiffness [Unknown]
